FAERS Safety Report 21173437 (Version 1)
Quarter: 2022Q3

REPORT INFORMATION
  Report Type: Spontaneous
  Country: NL (occurrence: NL)
  Receive Date: 20220804
  Receipt Date: 20220804
  Transmission Date: 20221027
  Serious: Yes (Hospitalization)
  Sender: FDA-Public Use
  Company Number: None

PATIENT
  Sex: Female
  Weight: 73 kg

DRUGS (7)
  1. DUPIXENT [Suspect]
     Active Substance: DUPILUMAB
     Indication: Asthma
     Dosage: FIRST DOSE 400 MG, SC, 2ND AND 3RD DOSE 200 MG
     Route: 058
     Dates: start: 202205
  2. DUPIXENT [Suspect]
     Active Substance: DUPILUMAB
     Indication: Bronchopulmonary aspergillosis allergic
     Dosage: 2ND AND 3RD DOSE 200 MG
     Dates: end: 20220714
  3. ALBUTEROL\IPRATROPIUM [Concomitant]
     Active Substance: ALBUTEROL\IPRATROPIUM
     Dosage: NEBULIZER, 1/0.2 MG/ML (MILLIGRAMS PER MILLILITER)
  4. LISINOPRIL [Concomitant]
     Active Substance: LISINOPRIL
     Dosage: TABLET, 10 MG (MILLIGRAM)
  5. FORMOTEROL [Concomitant]
     Active Substance: FORMOTEROL
     Dosage: AEROSOL, 12 ?G/DOSE (MICROGRAMS PER DOSE)
  6. CICLESONIDE [Concomitant]
     Active Substance: CICLESONIDE
     Dosage: AEROSOL, 160 ?G/DOSE (MICROGRAMS PER DOSE)
  7. ALENDRONIC ACID [Concomitant]
     Active Substance: ALENDRONIC ACID
     Dosage: TABLET, 70 MG (MILLIGRAM)

REACTIONS (2)
  - Labyrinthitis [Recovering/Resolving]
  - Dizziness [Recovering/Resolving]
